FAERS Safety Report 18621066 (Version 1)
Quarter: 2020Q4

REPORT INFORMATION
  Report Type: Spontaneous
  Country: US (occurrence: US)
  Receive Date: 20201216
  Receipt Date: 20201216
  Transmission Date: 20210114
  Serious: No
  Sender: FDA-Public Use
  Company Number: US-009507513-2012USA002679

PATIENT
  Age: 27 Year
  Sex: Female

DRUGS (4)
  1. STERILE DILUENT (WATER) [Suspect]
     Active Substance: WATER
     Dosage: UNK
     Dates: start: 202008
  2. VARIVAX [Suspect]
     Active Substance: VARICELLA-ZOSTER VIRUS STRAIN OKA/MERCK LIVE ANTIGEN
     Indication: PROPHYLAXIS
     Dosage: 1 DOSAGE FORM
     Dates: start: 1996
  3. VARIVAX [Suspect]
     Active Substance: VARICELLA-ZOSTER VIRUS STRAIN OKA/MERCK LIVE ANTIGEN
     Dates: start: 202008
  4. STERILE DILUENT (WATER) [Suspect]
     Active Substance: WATER
     Indication: PROPHYLAXIS
     Dosage: UNK
     Dates: start: 1996

REACTIONS (1)
  - Antibody test abnormal [Unknown]

NARRATIVE: CASE EVENT DATE: 202008
